FAERS Safety Report 5303022-1 (Version None)
Quarter: 2007Q2

REPORT INFORMATION
  Report Type: 
  Country: None (occurrence: None)
  Receive Date: 20070420
  Receipt Date: 20070411
  Transmission Date: 20071010
  Serious: Yes (Other)
  Sender: FDA-Public Use
  Company Number: PHBS2007JP04333

PATIENT
  Age: 19 Year
  Sex: Male

DRUGS (6)
  1. TACROLIMUS [Suspect]
     Indication: RENAL TRANSPLANT
     Route: 065
  2. CELLCEPT [Suspect]
     Indication: RENAL TRANSPLANT
     Route: 065
  3. PREDNISOLONE [Concomitant]
     Indication: RENAL TRANSPLANT
     Dosage: UNK, UNK
     Route: 065
  4. PREDNISOLONE [Concomitant]
     Dosage: 40 MG/DAY
     Route: 065
  5. PREDNISOLONE [Concomitant]
     Dosage: 20 MG/DAY
     Route: 065
  6. SIMULECT [Suspect]
     Indication: RENAL TRANSPLANT
     Dosage: 20 MG, UNK
     Route: 042

REACTIONS (8)
  - ARTHRALGIA [None]
  - BLOOD CREATININE INCREASED [None]
  - CYTOMEGALOVIRUS INFECTION [None]
  - MYALGIA [None]
  - POLYARTERITIS NODOSA [None]
  - PROTEIN URINE PRESENT [None]
  - PYREXIA [None]
  - VASCULITIS [None]
